FAERS Safety Report 6633713-1 (Version None)
Quarter: 2010Q1

REPORT INFORMATION
  Report Type: 
  Country: None (occurrence: None)
  Receive Date: 20100315
  Receipt Date: 20100304
  Transmission Date: 20100710
  Serious: Yes (Hospitalization)
  Sender: FDA-Public Use
  Company Number: US-BIOGENIDEC-2010BI006200

PATIENT
  Age: 39 Year
  Sex: Female

DRUGS (5)
  1. TYSABRI [Suspect]
     Indication: MULTIPLE SCLEROSIS
     Route: 042
     Dates: start: 20080312
  2. STRATTERA [Concomitant]
  3. WELLBUTRIN [Concomitant]
  4. AMBIEN [Concomitant]
  5. BACLOFEN [Concomitant]

REACTIONS (1)
  - NEPHROLITHIASIS [None]
